FAERS Safety Report 16672040 (Version 2)
Quarter: 2021Q1

REPORT INFORMATION
  Report Type: Spontaneous
  Country: CN (occurrence: CN)
  Receive Date: 20190806
  Receipt Date: 20210122
  Transmission Date: 20210419
  Serious: Yes (Other)
  Sender: FDA-Public Use
  Company Number: CN-ROCHE-2368864

PATIENT
  Age: 58 Year
  Sex: Female

DRUGS (14)
  1. XELODA [Suspect]
     Active Substance: CAPECITABINE
     Indication: METASTASES TO LIVER
     Route: 048
     Dates: start: 2018
  2. AVASTIN [Suspect]
     Active Substance: BEVACIZUMAB
     Route: 065
     Dates: start: 2018
  3. 5?FLUOROURACIL [Concomitant]
     Active Substance: FLUOROURACIL
     Dates: start: 20170624
  4. AVASTIN [Suspect]
     Active Substance: BEVACIZUMAB
     Route: 065
     Dates: start: 20180125
  5. OXALIPLATIN. [Suspect]
     Active Substance: OXALIPLATIN
     Indication: PRODUCT USED FOR UNKNOWN INDICATION
     Route: 065
     Dates: start: 20160225, end: 20160620
  6. OXALIPLATIN. [Suspect]
     Active Substance: OXALIPLATIN
     Route: 065
     Dates: start: 2018
  7. IRINOTECAN [Concomitant]
     Active Substance: IRINOTECAN
     Dates: start: 20170624
  8. XELODA [Suspect]
     Active Substance: CAPECITABINE
     Indication: COLON CANCER
     Dosage: DAY1?14
     Route: 048
     Dates: start: 20160225
  9. AVASTIN [Suspect]
     Active Substance: BEVACIZUMAB
     Route: 065
     Dates: start: 20171208
  10. IRINOTECAN [Concomitant]
     Active Substance: IRINOTECAN
     Dates: start: 20170921
  11. CALCIUM FOLINATE [Concomitant]
     Active Substance: LEUCOVORIN CALCIUM
     Dates: start: 20170921
  12. AVASTIN [Suspect]
     Active Substance: BEVACIZUMAB
     Indication: PRODUCT USED FOR UNKNOWN INDICATION
     Route: 065
     Dates: start: 20170624, end: 20170919
  13. CALCIUM FOLINATE [Concomitant]
     Active Substance: LEUCOVORIN CALCIUM
     Dates: start: 20170624
  14. 5?FLUOROURACIL [Concomitant]
     Active Substance: FLUOROURACIL
     Dates: start: 20170921

REACTIONS (3)
  - Pelvic fluid collection [Unknown]
  - Myelosuppression [Unknown]
  - Gastrointestinal disorder [Unknown]

NARRATIVE: CASE EVENT DATE: 2017
